FAERS Safety Report 9036197 (Version 2)
Quarter: 2013Q1

REPORT INFORMATION
  Report Type: Spontaneous
  Country: GE (occurrence: None)
  Receive Date: 20130116
  Receipt Date: 20130213
  Transmission Date: 20140127
  Serious: Yes (Death)
  Sender: FDA-Public Use
  Company Number: 2013GE0001

PATIENT
  Age: 17 Month
  Sex: Female

DRUGS (1)
  1. ORFADIN (NITISINONE) [Suspect]
     Indication: TYROSINAEMIA
     Dates: start: 20121009

REACTIONS (8)
  - Hepatic cancer [None]
  - Multi-organ failure [None]
  - Hepatic failure [None]
  - Coma [None]
  - Ascites [None]
  - Renal failure [None]
  - Cardiac failure [None]
  - Acute respiratory distress syndrome [None]
